FAERS Safety Report 14132931 (Version 6)
Quarter: 2018Q1

REPORT INFORMATION
  Report Type: Other
  Country: IT (occurrence: IT)
  Receive Date: 20171027
  Receipt Date: 20180319
  Transmission Date: 20180508
  Serious: Yes (Other)
  Sender: FDA-Public Use
  Company Number: IT-VELOXIS PHARMACEUTICALS-2031654

PATIENT
  Age: 59 Year
  Sex: Male

DRUGS (5)
  1. MYCOPHENOLATE MOFETIL. [Suspect]
     Active Substance: MYCOPHENOLATE MOFETIL
  2. RIBAVIRIN RATIOPHARM [Suspect]
     Active Substance: RIBAVIRIN
     Dates: start: 201604
  3. ENVARSUS XR [Suspect]
     Active Substance: TACROLIMUS
     Indication: IMMUNOSUPPRESSION
     Route: 065
  4. VIEKIRA PAK [Suspect]
     Active Substance: DASABUVIR\OMBITASVIR\PARITAPREVIR\RITONAVIR
     Dates: start: 201604
  5. PREDNISONE. [Suspect]
     Active Substance: PREDNISONE

REACTIONS (4)
  - Anxiety [Recovered/Resolved]
  - Fatigue [Recovered/Resolved]
  - Immunosuppressant drug level increased [Recovered/Resolved]
  - Renal impairment [Recovered/Resolved]

NARRATIVE: CASE EVENT DATE: 201604
